FAERS Safety Report 4414486-X (Version None)
Quarter: 2004Q3

REPORT INFORMATION
  Report Type: 
  Country: None (occurrence: None)
  Receive Date: 20040702
  Receipt Date: 20031015
  Transmission Date: 20050211
  Serious: Yes (Other)
  Sender: FDA-Public Use
  Company Number: 349347

PATIENT
  Age: 46 Year
  Sex: Female

DRUGS (6)
  1. KLONOPIN [Suspect]
     Indication: DRUG USE FOR UNKNOWN INDICATION
  2. CLOZAPINE [Suspect]
     Indication: DRUG USE FOR UNKNOWN INDICATION
     Dosage: 100 MG DAILY ORAL
     Route: 048
     Dates: start: 20020905, end: 20020912
  3. PROTONIX [Suspect]
     Indication: DRUG USE FOR UNKNOWN INDICATION
     Dates: end: 20030926
  4. RISPERDAL [Suspect]
     Indication: DRUG USE FOR UNKNOWN INDICATION
     Dates: end: 20030919
  5. LAMOTRIGINE [Suspect]
     Indication: DRUG USE FOR UNKNOWN INDICATION
     Dates: end: 20030919
  6. COGENTIN [Concomitant]

REACTIONS (1)
  - LEUKOPENIA [None]
